FAERS Safety Report 7832875-8 (Version None)
Quarter: 2011Q4

REPORT INFORMATION
  Report Type: 
  Country: None (occurrence: None)
  Receive Date: 20111024
  Receipt Date: 20111011
  Transmission Date: 20120403
  Serious: Yes (Other)
  Sender: FDA-Public Use
  Company Number: GB-RANBAXY-2011R1-49391

PATIENT
  Sex: Female

DRUGS (4)
  1. NEBIVOLOL HCL [Concomitant]
     Indication: PRODUCT USED FOR UNKNOWN INDICATION
     Dosage: UNK
     Route: 065
  2. ASPIRIN [Concomitant]
     Indication: PRODUCT USED FOR UNKNOWN INDICATION
     Dosage: UNK
     Route: 065
  3. LISINOPRIL [Suspect]
     Indication: HYPERTENSION
     Dosage: 20 MG, UNK
     Route: 065
     Dates: start: 20101029, end: 20110516
  4. BENDROFLUAZIDE [Concomitant]
     Indication: PRODUCT USED FOR UNKNOWN INDICATION
     Dosage: UNK
     Route: 065

REACTIONS (3)
  - OLIGOHYDRAMNIOS [None]
  - MATERNAL EXPOSURE DURING PREGNANCY [None]
  - PREMATURE LABOUR [None]
